FAERS Safety Report 6938823-7 (Version None)
Quarter: 2010Q3

REPORT INFORMATION
  Report Type: 
  Country: None (occurrence: None)
  Receive Date: 20100824
  Receipt Date: 20100819
  Transmission Date: 20110219
  Serious: Yes (Hospitalization)
  Sender: FDA-Public Use
  Company Number: JP-BAYER-201012237BYL

PATIENT
  Age: 72 Year
  Sex: Male
  Weight: 59 kg

DRUGS (8)
  1. NEXAVAR [Suspect]
     Indication: HEPATIC NEOPLASM MALIGNANT
     Dosage: AS USED: 400 MG  UNIT DOSE: 200 MG
     Route: 048
     Dates: start: 20100413, end: 20100426
  2. AMLODIPINE BESYLATE [Concomitant]
     Route: 048
  3. ZYLORIC [Concomitant]
     Route: 048
  4. TAKEPRON [Concomitant]
     Route: 065
  5. LENDORMIN [Concomitant]
     Route: 048
  6. LASIX [Concomitant]
     Route: 065
  7. ALDACTONE [Concomitant]
     Route: 048
  8. FARMORUBICIN [Concomitant]
     Indication: HEPATIC NEOPLASM MALIGNANT
     Route: 013
     Dates: start: 20100224, end: 20100224

REACTIONS (2)
  - DISSEMINATED INTRAVASCULAR COAGULATION [None]
  - PYREXIA [None]
